FAERS Safety Report 5897952-X (Version None)
Quarter: 2008Q3

REPORT INFORMATION
  Report Type: 
  Country: None (occurrence: None)
  Receive Date: 20080925
  Receipt Date: 20080922
  Transmission Date: 20090109
  Serious: Yes (Death)
  Sender: FDA-Public Use
  Company Number: A0749123A

PATIENT
  Age: 68 Year
  Sex: Female
  Weight: 37 kg

DRUGS (1)
  1. SERETIDE [Suspect]
     Route: 055

REACTIONS (1)
  - CARDIAC ARREST [None]
